FAERS Safety Report 24226381 (Version 1)
Quarter: 2024Q3

REPORT INFORMATION
  Report Type: Spontaneous
  Country: DE (occurrence: DE)
  Receive Date: 20240820
  Receipt Date: 20240820
  Transmission Date: 20241016
  Serious: Yes (Death)
  Sender: EPIC PHARM
  Company Number: DE-EPICPHARMA-DE-2024EPCLIT01012

PATIENT
  Age: 53 Year
  Sex: Female

DRUGS (2)
  1. PENTOBARBITAL SODIUM [Suspect]
     Active Substance: PENTOBARBITAL SODIUM
     Indication: Product used for unknown indication
     Route: 048
  2. METOCLOPRAMIDE [Suspect]
     Active Substance: METOCLOPRAMIDE
     Indication: Product used for unknown indication
     Route: 048

REACTIONS (3)
  - Toxicity to various agents [Fatal]
  - Intentional product misuse [Unknown]
  - Overdose [Unknown]
